FAERS Safety Report 9391547 (Version 2)
Quarter: 2013Q3

REPORT INFORMATION
  Report Type: Spontaneous
  Country: JP (occurrence: JP)
  Receive Date: 20130709
  Receipt Date: 20130722
  Transmission Date: 20140515
  Serious: No
  Sender: FDA-Public Use
  Company Number: JP-JNJFOC-20130612508

PATIENT
  Age: 7 Decade
  Sex: Male

DRUGS (9)
  1. RISPERDAL [Suspect]
     Indication: PRODUCT USED FOR UNKNOWN INDICATION
     Route: 048
     Dates: start: 20130520
  2. BAKTAR [Concomitant]
     Route: 048
  3. SPIRONOLACTONE [Concomitant]
     Route: 048
  4. TAKEPRON [Concomitant]
     Route: 065
  5. PLETAAL [Concomitant]
     Route: 048
  6. PREDONINE [Concomitant]
     Route: 065
  7. ANPLAG [Concomitant]
     Route: 048
  8. URSO [Concomitant]
     Route: 048
  9. REBAMIPIDE [Concomitant]
     Route: 048

REACTIONS (1)
  - Iron deficiency anaemia [Recovered/Resolved]
